FAERS Safety Report 23114695 (Version 1)
Quarter: 2023Q4

REPORT INFORMATION
  Report Type: Spontaneous
  Country: DE (occurrence: DE)
  Receive Date: 20231027
  Receipt Date: 20231027
  Transmission Date: 20240110
  Serious: Yes (Congenital Anomaly, Other)
  Sender: FDA-Public Use
  Company Number: None

PATIENT
  Sex: Male
  Weight: 3 kg

DRUGS (2)
  1. VENLAFAXINE [Suspect]
     Active Substance: VENLAFAXINE HYDROCHLORIDE
     Indication: Product used for unknown indication
     Dosage: MOTHER^S DOSE: 112.5 MG PER DAY FROM 19/03/2022 TO 17/12/2022 FOR 273 DAYS
     Route: 064
  2. ASPIRIN [Concomitant]
     Active Substance: ASPIRIN
     Indication: Product used for unknown indication
     Dosage: MOTHER^S DOSE: 500 MG/DAY FROM 15/11/2022 TO 15/11/2022 FOR 1 DAY
     Route: 064

REACTIONS (3)
  - Myoclonus [Unknown]
  - Neonatal seizure [Unknown]
  - Foetal exposure during pregnancy [Unknown]
